FAERS Safety Report 8494443 (Version 2)
Quarter: 2013Q3

REPORT INFORMATION
  Report Type: Spontaneous
  Country: US (occurrence: US)
  Receive Date: 20120404
  Receipt Date: 20130731
  Transmission Date: 20140515
  Serious: No
  Sender: FDA-Public Use
  Company Number: US-PFIZER INC-2012080599

PATIENT
  Age: 71 Year
  Sex: Female
  Weight: 77.1 kg

DRUGS (2)
  1. DETROL LA [Suspect]
     Indication: BLADDER DISORDER
     Dosage: UNK, AS NEEDED
  2. INSULIN [Concomitant]
     Indication: DIABETES MELLITUS
     Dosage: UNK, 3X/DAY

REACTIONS (1)
  - Urinary incontinence [Unknown]
